FAERS Safety Report 8128313-0 (Version None)
Quarter: 2012Q1

REPORT INFORMATION
  Report Type: 
  Country: None (occurrence: None)
  Receive Date: 20120210
  Receipt Date: 20120207
  Transmission Date: 20120608
  Serious: No
  Sender: FDA-Public Use
  Company Number: US-PFIZER INC-2012017378

PATIENT
  Sex: Female
  Weight: 82.086 kg

DRUGS (14)
  1. CHANTIX [Suspect]
     Indication: SMOKING CESSATION THERAPY
     Dosage: 0.50 MG, DAILY
     Route: 048
     Dates: start: 20120117, end: 20120119
  2. PROAIR HFA [Concomitant]
     Dosage: UNK
  3. DARVOCET [Concomitant]
     Dosage: UNK, DAILY
  4. CHANTIX [Suspect]
     Dosage: 0.5 MG, 2X/DAY
     Route: 048
     Dates: start: 20120120
  5. SIMVASTATIN [Concomitant]
     Indication: BLOOD CHOLESTEROL INCREASED
     Dosage: 40 MG, DAILY
  6. ETODOLAC [Concomitant]
     Indication: PAIN
     Dosage: 400 MG, DAILY
  7. OMEPRAZOLE [Concomitant]
     Indication: GASTROOESOPHAGEAL REFLUX DISEASE
     Dosage: 40 MG, DAILY
  8. GABAPENTIN [Concomitant]
     Indication: PARAESTHESIA
     Dosage: 600 MG, 3X/DAY
  9. SPIRIVA [Concomitant]
     Dosage: UNK, DAILY
  10. ACETYLSALICYLIC ACID [Concomitant]
     Indication: CARDIAC DISORDER
     Dosage: 81 MG, DAILY
  11. ADVAIR DISKUS 100/50 [Concomitant]
     Indication: CHRONIC OBSTRUCTIVE PULMONARY DISEASE
  12. ADVAIR DISKUS 100/50 [Concomitant]
     Indication: BRONCHITIS CHRONIC
     Dosage: 550 UG, 2X/DAY
  13. LEXAPRO [Concomitant]
     Indication: DEPRESSION
     Dosage: 10 MG, DAILY
  14. FUROSEMIDE [Concomitant]
     Indication: DIURETIC THERAPY
     Dosage: 20 MG, DAILY

REACTIONS (3)
  - RASH [None]
  - BURNING SENSATION [None]
  - PRURITUS [None]
